FAERS Safety Report 14764134 (Version 7)
Quarter: 2018Q3

REPORT INFORMATION
  Report Type: Spontaneous
  Country: US (occurrence: BR)
  Receive Date: 20180416
  Receipt Date: 20180830
  Transmission Date: 20181010
  Serious: Yes (Hospitalization, Disabling, Other)
  Sender: FDA-Public Use
  Company Number: BR-CELGENEUS-BRA-20180402789

PATIENT
  Age: 79 Year
  Sex: Male
  Weight: 58.4 kg

DRUGS (90)
  1. VENETOCLAX. [Concomitant]
     Active Substance: VENETOCLAX
     Dosage: 200 MILLIGRAM
     Route: 048
     Dates: start: 20180309, end: 20180402
  2. ALOPURINOL [Concomitant]
     Active Substance: ALLOPURINOL
     Indication: PROPHYLAXIS
     Dosage: 100 MILLIGRAM
     Route: 048
     Dates: start: 20180220, end: 20180226
  3. ALOPURINOL [Concomitant]
     Active Substance: ALLOPURINOL
     Dosage: 100 MILLIGRAM
     Route: 048
     Dates: start: 20180305, end: 20180420
  4. ONDANSETRON [Concomitant]
     Active Substance: ONDANSETRON
     Indication: PROPHYLAXIS OF NAUSEA AND VOMITING
     Dosage: 24 MILLIGRAM
     Route: 041
     Dates: start: 20180305
  5. BROMOPRIDA [Concomitant]
     Indication: CHEST PAIN
     Dosage: 30 MILLIGRAM
     Route: 041
     Dates: start: 20180309
  6. FUROSEMIDE SODIUM [Concomitant]
     Active Substance: FUROSEMIDE SODIUM
     Indication: DYSPNOEA
     Dosage: 60 MILLIGRAM
     Route: 041
     Dates: start: 20180307
  7. INSULIN [Concomitant]
     Active Substance: INSULIN NOS
     Indication: HYPERKALAEMIA
     Dosage: 10 IU (INTERNATIONAL UNIT)
     Route: 041
     Dates: start: 20180308, end: 20180308
  8. HYDROXYCARBAMIDE [Concomitant]
     Active Substance: HYDROXYUREA
     Dosage: 1000 MILLIGRAM
     Route: 048
     Dates: start: 20180225
  9. GLUCOSE [Concomitant]
     Active Substance: DEXTROSE
     Indication: PROPHYLAXIS
  10. SODIUM CHLORIDE. [Concomitant]
     Active Substance: SODIUM CHLORIDE
     Dosage: 1000 MILLILITER
     Route: 041
     Dates: start: 20180603, end: 20180604
  11. OMEPRAZOLE. [Concomitant]
     Active Substance: OMEPRAZOLE
     Indication: GASTRITIS PROPHYLAXIS
     Dosage: 40 MILLIGRAM
     Route: 041
     Dates: start: 20180328, end: 20180425
  12. NORMAL SALINE [Concomitant]
     Active Substance: SODIUM CHLORIDE
     Dosage: 1000 MILLILITER
     Route: 065
     Dates: start: 20180328, end: 20180328
  13. DEXTROSE. [Concomitant]
     Active Substance: DEXTROSE
     Indication: TUMOUR LYSIS SYNDROME
  14. AZACITIDINE. [Suspect]
     Active Substance: AZACITIDINE
     Dosage: 75 MILLIGRAM/SQ. METER
     Route: 058
     Dates: start: 20180814
  15. VENETOCLAX. [Concomitant]
     Active Substance: VENETOCLAX
     Dosage: 200 MILLIGRAM
     Route: 048
     Dates: start: 20180430
  16. SULFAMETHOXAZOLE [Concomitant]
     Active Substance: SULFAMETHOXAZOLE
     Dosage: 400 MILLIGRAM
     Route: 002
     Dates: start: 20180305
  17. ACYCLOVIR. [Concomitant]
     Active Substance: ACYCLOVIR
     Indication: INFECTION PROPHYLAXIS
     Dosage: 400 MILLIGRAM
     Route: 048
     Dates: start: 20180220
  18. BISOPROLOL [Concomitant]
     Active Substance: BISOPROLOL
     Dosage: 7.5 MILLIGRAM
     Route: 048
     Dates: start: 20180308
  19. SALBUTAMOL [Concomitant]
     Active Substance: ALBUTEROL
     Indication: HYPERKALAEMIA
     Dosage: 10 MILLIGRAM
     Route: 055
     Dates: start: 20180221, end: 20180221
  20. ROSUVASTATIN CALCIUM. [Concomitant]
     Active Substance: ROSUVASTATIN CALCIUM
     Indication: HYPERLIPIDAEMIA
  21. GLUCOSE [Concomitant]
     Active Substance: DEXTROSE
     Indication: HYPERKALAEMIA
     Dosage: 100 MILLILITER
     Route: 041
     Dates: start: 20180308, end: 20180308
  22. GLUCOSE [Concomitant]
     Active Substance: DEXTROSE
     Indication: TUMOUR LYSIS SYNDROME
  23. SODIUM CHLORIDE. [Concomitant]
     Active Substance: SODIUM CHLORIDE
     Dosage: 1500 MILLILITER
     Route: 041
     Dates: start: 20180510, end: 20180511
  24. SODIUM CHLORIDE. [Concomitant]
     Active Substance: SODIUM CHLORIDE
     Dosage: 1500 MILLILITER
     Route: 041
     Dates: start: 20180530, end: 20180531
  25. VITAMIN D [Concomitant]
     Active Substance: CHOLECALCIFEROL
     Indication: PRODUCT USED FOR UNKNOWN INDICATION
     Dosage: 1000 IU (INTERNATIONAL UNIT)
     Route: 048
     Dates: start: 20180401
  26. NORMAL SALINE [Concomitant]
     Active Substance: SODIUM CHLORIDE
     Dosage: 6000 MILLILITER
     Route: 065
     Dates: start: 20180311, end: 20180313
  27. NORMAL SALINE [Concomitant]
     Active Substance: SODIUM CHLORIDE
     Dosage: 1000 MILLILITER
     Route: 065
     Dates: start: 20180602, end: 20180602
  28. AZACITIDINE. [Suspect]
     Active Substance: AZACITIDINE
     Dosage: 75 MILLIGRAM/SQ. METER
     Route: 058
     Dates: start: 20180430, end: 20180627
  29. SALBUTAMOL [Concomitant]
     Active Substance: ALBUTEROL
     Indication: FEBRILE NEUTROPENIA
     Dosage: 10 MILLIGRAM
     Route: 055
     Dates: start: 20180307
  30. FUROSEMIDE SODIUM [Concomitant]
     Active Substance: FUROSEMIDE SODIUM
     Dosage: 60 MILLIGRAM
     Route: 013
     Dates: start: 20180307
  31. ROSUVASTATIN CALCIUM. [Concomitant]
     Active Substance: ROSUVASTATIN CALCIUM
     Indication: HYPERCHOLESTEROLAEMIA
     Dosage: 10 MILLIGRAM
     Route: 048
     Dates: start: 2017
  32. GIK SOLUTION [Concomitant]
     Indication: HYPERKALAEMIA
     Route: 065
     Dates: start: 20180308
  33. ATENOLOL. [Concomitant]
     Active Substance: ATENOLOL
     Dosage: 50 MILLIGRAM
     Route: 048
     Dates: start: 20180227, end: 20180304
  34. CLOPIDOGREL [Concomitant]
     Active Substance: CLOPIDOGREL BISULFATE
     Indication: ISCHAEMIC HEART DISEASE PROPHYLAXIS
     Dosage: 75 MILLIGRAM
     Route: 048
     Dates: start: 20180220, end: 20180305
  35. SODIUM CHLORIDE. [Concomitant]
     Active Substance: SODIUM CHLORIDE
     Indication: PROPHYLAXIS
     Dosage: 7500 MILLILITER
     Route: 041
     Dates: start: 20180220, end: 20180226
  36. SODIUM CHLORIDE. [Concomitant]
     Active Substance: SODIUM CHLORIDE
     Dosage: 6000 MILLILITER
     Route: 041
     Dates: start: 20180311, end: 20180313
  37. NORMAL SALINE [Concomitant]
     Active Substance: SODIUM CHLORIDE
     Indication: TUMOUR LYSIS SYNDROME
     Dosage: ADD 10ML OF 10% CALCIUM GLUCONATE (5000 ML)
     Route: 065
     Dates: start: 20180209, end: 20180211
  38. DEXTROSE. [Concomitant]
     Active Substance: DEXTROSE
     Indication: PROPHYLAXIS
  39. SULFAMETHOXAZOLE [Concomitant]
     Active Substance: SULFAMETHOXAZOLE
     Indication: INFECTION PROPHYLAXIS
     Dosage: 400 MILLIGRAM
     Route: 002
     Dates: start: 20180219, end: 20180221
  40. SULFAMETHOXAZOLE [Concomitant]
     Active Substance: SULFAMETHOXAZOLE
     Dosage: 400 MILLIGRAM
     Route: 048
     Dates: start: 20180305
  41. ACYCLOVIR. [Concomitant]
     Active Substance: ACYCLOVIR
     Dosage: 400 MILLIGRAM
     Route: 002
     Dates: start: 20180305, end: 20180305
  42. BISOPROLOL [Concomitant]
     Active Substance: BISOPROLOL
     Indication: ISCHAEMIC HEART DISEASE PROPHYLAXIS
     Dosage: 5 MILLIGRAM
     Route: 048
     Dates: start: 20180305, end: 20180307
  43. HYDROCORTISONE SODIUM [Concomitant]
     Active Substance: HYDROCORTISONE SODIUM SUCCINATE
     Indication: DYSPNOEA
     Dosage: 100 MILLIGRAM
     Route: 041
     Dates: start: 20180221, end: 20180221
  44. ISOSORBIDE. [Concomitant]
     Active Substance: ISOSORBIDE
     Indication: PRODUCT USED FOR UNKNOWN INDICATION
     Dosage: 5 MILLIGRAM
     Route: 058
     Dates: start: 20180309, end: 20180309
  45. ISOSORBIDE. [Concomitant]
     Active Substance: ISOSORBIDE
     Dosage: 30 MILLIGRAM
     Route: 048
     Dates: start: 20180309
  46. HYDROXYCARBAMIDE [Concomitant]
     Active Substance: HYDROXYUREA
     Dosage: 1500 MILLIGRAM
     Route: 048
     Dates: start: 20180224, end: 20180224
  47. SODIUM CHLORIDE. [Concomitant]
     Active Substance: SODIUM CHLORIDE
     Dosage: 1000 MILLILITER
     Route: 041
     Dates: start: 20180602, end: 20180602
  48. SULFAMETHOXAZOLE W/TRIMETHOPRIM [Concomitant]
     Active Substance: SULFAMETHOXAZOLE\TRIMETHOPRIM
     Indication: ANTIBIOTIC PROPHYLAXIS
     Dosage: 400/80MG
     Route: 048
     Dates: start: 20180305
  49. SULFAMETHOXAZOLE W/TRIMETHOPRIM [Concomitant]
     Active Substance: SULFAMETHOXAZOLE\TRIMETHOPRIM
     Dosage: 400/80MG
     Route: 048
     Dates: start: 20180219, end: 20180221
  50. ENALAPRIL [Concomitant]
     Active Substance: ENALAPRIL
     Indication: PRODUCT USED FOR UNKNOWN INDICATION
     Dosage: 10 MILLIGRAM
     Route: 048
     Dates: start: 20180328
  51. DEXTROSE. [Concomitant]
     Active Substance: DEXTROSE
     Indication: FLUID REPLACEMENT
     Route: 065
  52. VENETOCLAX. [Concomitant]
     Active Substance: VENETOCLAX
     Indication: ACUTE MYELOID LEUKAEMIA
     Dosage: 50 MILLIGRAM
     Route: 048
     Dates: start: 20180307, end: 20180307
  53. PREDNISONE. [Concomitant]
     Active Substance: PREDNISONE
     Indication: DYSPNOEA
     Dosage: 40 MILLIGRAM
     Route: 048
     Dates: start: 20180308, end: 20180313
  54. PREDNISONE. [Concomitant]
     Active Substance: PREDNISONE
     Dosage: 40 MILLIGRAM
     Route: 002
     Dates: start: 20180309
  55. RAMIPRIL. [Concomitant]
     Active Substance: RAMIPRIL
     Indication: ISCHAEMIC HEART DISEASE PROPHYLAXIS
     Dosage: 5 MILLIGRAM
     Route: 048
     Dates: start: 20180221, end: 20180221
  56. SODIUM CHLORIDE. [Concomitant]
     Active Substance: SODIUM CHLORIDE
     Dosage: 1000 MILLILITER
     Route: 041
     Dates: start: 20180328, end: 20180328
  57. NORMAL SALINE [Concomitant]
     Active Substance: SODIUM CHLORIDE
     Dosage: 1000 MILLILITER
     Route: 065
     Dates: start: 20180603, end: 20180604
  58. VENETOCLAX. [Concomitant]
     Active Substance: VENETOCLAX
     Dosage: 100 MILLIGRAM
     Route: 048
     Dates: start: 20180308, end: 20180308
  59. CEFEPIME HYDROCHLORIDE. [Concomitant]
     Active Substance: CEFEPIME HYDROCHLORIDE
     Dosage: 12 GRAM
     Route: 065
     Dates: start: 20180307
  60. BISOPROLOL [Concomitant]
     Active Substance: BISOPROLOL
     Indication: CARDIOVASCULAR EVENT PROPHYLAXIS
     Dosage: 5 MILLIGRAM
     Route: 048
     Dates: start: 20180224, end: 20180226
  61. BROMOPRIDA [Concomitant]
     Indication: PROPHYLAXIS OF NAUSEA AND VOMITING
  62. HYDROCORTISONE SODIUM [Concomitant]
     Active Substance: HYDROCORTISONE SODIUM SUCCINATE
     Dosage: 300 MILLIGRAM
     Route: 041
     Dates: start: 20180414, end: 20180414
  63. CALCIUM POLYSTYRENE [Concomitant]
     Indication: HYPOCALCAEMIA
     Dosage: 30 GRAM
     Route: 048
     Dates: start: 20180221, end: 20180224
  64. SODIUM CHLORIDE. [Concomitant]
     Active Substance: SODIUM CHLORIDE
     Dosage: 5000 MILLILITER
     Route: 041
     Dates: start: 20180209, end: 20180211
  65. RED BLOOD CELLS [Concomitant]
     Active Substance: HUMAN RED BLOOD CELL
     Indication: PRODUCT USED FOR UNKNOWN INDICATION
     Route: 065
  66. SIMETHICONE (DIMETHICONE) [Concomitant]
     Active Substance: DIMETHICONE
     Indication: PRODUCT USED FOR UNKNOWN INDICATION
     Dosage: 225 MILLIGRAM/MILLILITERS
     Route: 048
     Dates: start: 20180311, end: 20180313
  67. DIPYRONE [Concomitant]
     Active Substance: DIPYRONE
     Indication: PRODUCT USED FOR UNKNOWN INDICATION
     Dosage: 1 GRAM
     Route: 041
     Dates: start: 20180329, end: 20180329
  68. NORMAL SALINE [Concomitant]
     Active Substance: SODIUM CHLORIDE
     Indication: PROPHYLAXIS
     Dosage: 4000 MILLILITER
     Route: 065
     Dates: start: 20180306, end: 20180308
  69. NORMAL SALINE [Concomitant]
     Active Substance: SODIUM CHLORIDE
     Dosage: 1500 MILLILITER
     Route: 065
     Dates: start: 20180510, end: 20180511
  70. NORMAL SALINE [Concomitant]
     Active Substance: SODIUM CHLORIDE
     Dosage: 1500 MILLILITER
     Route: 065
     Dates: start: 20180530, end: 20180531
  71. BISOPROLOL [Concomitant]
     Active Substance: BISOPROLOL
     Dosage: 5 MILLIGRAM
     Route: 002
     Dates: start: 20180305, end: 20180308
  72. FUROSEMIDE SODIUM [Concomitant]
     Active Substance: FUROSEMIDE SODIUM
     Dosage: 90 MILLIGRAM
     Route: 013
     Dates: start: 20180307
  73. HYDROCORTISONE SODIUM [Concomitant]
     Active Substance: HYDROCORTISONE SODIUM SUCCINATE
     Indication: DYSPNOEA
     Dosage: 100 MILLIGRAM
     Route: 041
     Dates: start: 20180307, end: 20180307
  74. HYDROCORTISONE SODIUM [Concomitant]
     Active Substance: HYDROCORTISONE SODIUM SUCCINATE
     Dosage: 200 MILLIGRAM
     Route: 041
     Dates: start: 20180311, end: 20180311
  75. ZOLPIDEM [Concomitant]
     Active Substance: ZOLPIDEM\ZOLPIDEM TARTRATE
     Indication: INSOMNIA
     Dosage: 10 MILLIGRAM
     Route: 048
     Dates: start: 20180220
  76. ZOLPIDEM [Concomitant]
     Active Substance: ZOLPIDEM\ZOLPIDEM TARTRATE
     Indication: CARDIAC OPERATION
     Dosage: 5 MILLIGRAM
     Route: 048
     Dates: start: 20180305
  77. METRONIDAZOLE. [Concomitant]
     Active Substance: METRONIDAZOLE
     Indication: PROPHYLAXIS
     Dosage: 1200 MILLIGRAM
     Route: 048
     Dates: start: 20180220, end: 20180223
  78. HYDROXYCARBAMIDE [Concomitant]
     Active Substance: HYDROXYUREA
     Indication: ACUTE MYELOID LEUKAEMIA
     Dosage: 500 MILLIGRAM
     Route: 048
     Dates: start: 20180220, end: 20180223
  79. SODIUM CHLORIDE. [Concomitant]
     Active Substance: SODIUM CHLORIDE
     Dosage: 4000 MILLILITER
     Route: 041
     Dates: start: 20180306, end: 20180308
  80. G?CSF [Concomitant]
     Active Substance: GRANULOCYTE COLONY-STIMULATING FACTOR NOS
     Indication: PRODUCT USED FOR UNKNOWN INDICATION
     Route: 065
  81. NORMAL SALINE [Concomitant]
     Active Substance: SODIUM CHLORIDE
     Dosage: 1500 MILLILITER
     Route: 065
     Dates: start: 20180529, end: 20180530
  82. DIPHENHYDRAMINE HCL [Concomitant]
     Active Substance: DIPHENHYDRAMINE HYDROCHLORIDE
     Indication: PROPHYLAXIS
     Dosage: 50 MILLIGRAM
     Route: 041
     Dates: start: 20180310
  83. AZACITIDINE. [Suspect]
     Active Substance: AZACITIDINE
     Indication: ACUTE MYELOID LEUKAEMIA
     Dosage: 75 MILLIGRAM/SQ. METER
     Route: 058
     Dates: start: 20180307, end: 20180313
  84. CEFEPIME HYDROCHLORIDE. [Concomitant]
     Active Substance: CEFEPIME HYDROCHLORIDE
     Indication: FEBRILE NEUTROPENIA
     Dosage: 8 GRAM
     Route: 065
     Dates: start: 20180307
  85. SALBUTAMOL [Concomitant]
     Active Substance: ALBUTEROL
     Dosage: 20 MILLIGRAM
     Route: 055
     Dates: start: 20180307
  86. ALBENDAZOLE [Concomitant]
     Active Substance: ALBENDAZOLE
     Indication: PROPHYLAXIS
     Dosage: 400 MILLIGRAM
     Route: 048
     Dates: start: 20180220, end: 20180222
  87. ATENOLOL. [Concomitant]
     Active Substance: ATENOLOL
     Indication: ISCHAEMIC HEART DISEASE PROPHYLAXIS
     Dosage: 50 MILLIGRAM
     Route: 048
     Dates: start: 2017, end: 20180223
  88. GLUCOSE [Concomitant]
     Active Substance: DEXTROSE
     Indication: FLUID REPLACEMENT
  89. SODIUM CHLORIDE. [Concomitant]
     Active Substance: SODIUM CHLORIDE
     Dosage: 1500 MILLILITER
     Route: 041
     Dates: start: 20180529, end: 20180530
  90. NORMAL SALINE [Concomitant]
     Active Substance: SODIUM CHLORIDE
     Indication: FLUID REPLACEMENT
     Dosage: 7500 MILLILITER
     Route: 065
     Dates: start: 20180220, end: 20180226

REACTIONS (7)
  - Hypophosphataemia [Not Recovered/Not Resolved]
  - Anaemia [Not Recovered/Not Resolved]
  - Fungal infection [Not Recovered/Not Resolved]
  - Hypocalcaemia [Not Recovered/Not Resolved]
  - Febrile neutropenia [Not Recovered/Not Resolved]
  - Thrombocytopenia [Not Recovered/Not Resolved]
  - Febrile neutropenia [Recovered/Resolved]

NARRATIVE: CASE EVENT DATE: 20180307
